FAERS Safety Report 18218647 (Version 2)
Quarter: 2021Q1

REPORT INFORMATION
  Report Type: Spontaneous
  Country: JP (occurrence: JP)
  Receive Date: 20200901
  Receipt Date: 20210316
  Transmission Date: 20210419
  Serious: Yes (Other)
  Sender: FDA-Public Use
  Company Number: JP-DSJP-DSJ-2020-119556

PATIENT
  Age: 36 Year
  Sex: Female

DRUGS (1)
  1. ENHERTU [Suspect]
     Active Substance: FAM-TRASTUZUMAB DERUXTECAN-NXKI
     Indication: HER2 POSITIVE BREAST CANCER
     Dosage: UNK, ONCE EVERY 3 WK
     Route: 041
     Dates: start: 20200625

REACTIONS (3)
  - Nausea [Unknown]
  - Vomiting [Recovering/Resolving]
  - Metastases to liver [Unknown]

NARRATIVE: CASE EVENT DATE: 20200628
